FAERS Safety Report 7303883-0 (Version None)
Quarter: 2011Q1

REPORT INFORMATION
  Report Type: 
  Country: None (occurrence: None)
  Receive Date: 20110221
  Receipt Date: 20110218
  Transmission Date: 20110831
  Serious: Yes (Other)
  Sender: FDA-Public Use
  Company Number: B0699951A

PATIENT
  Age: 20 Year
  Sex: Female

DRUGS (4)
  1. DEPAKENE [Concomitant]
     Route: 065
  2. LAMBIPOL [Suspect]
     Dosage: 150MG PER DAY
     Route: 065
  3. IMPLANON [Suspect]
     Indication: CONTRACEPTION
     Route: 065
  4. MICROGYNON 50 [Suspect]
     Indication: CONTRACEPTION
     Route: 065
     Dates: start: 20101201

REACTIONS (4)
  - DEPRESSION [None]
  - DRUG INTERACTION [None]
  - VAGINAL HAEMORRHAGE [None]
  - UTERINE HAEMORRHAGE [None]
